FAERS Safety Report 4847643-9 (Version None)
Quarter: 2005Q4

REPORT INFORMATION
  Report Type: 
  Country: None (occurrence: None)
  Receive Date: 20051205
  Receipt Date: 20051121
  Transmission Date: 20060501
  Serious: Yes (Death)
  Sender: FDA-Public Use
  Company Number: 2005150290

PATIENT
  Age: 93 Year
  Sex: Male

DRUGS (2)
  1. XALATAN [Suspect]
     Indication: GLAUCOMA
     Dosage: ONE DROP (DAILY), OPHTHALMIC
     Route: 047
     Dates: start: 20010101
  2. CARDIOVASCULAR SYSTEM DRUGS (CARDIOVASCULAR SYSTEM DRUGS) [Concomitant]

REACTIONS (4)
  - CARDIAC FAILURE [None]
  - NAIL DISCOLOURATION [None]
  - SKIN DISCOLOURATION [None]
  - VISUAL ACUITY REDUCED [None]
